FAERS Safety Report 19282926 (Version 3)
Quarter: 2021Q3

REPORT INFORMATION
  Report Type: Spontaneous
  Country: US (occurrence: US)
  Receive Date: 20210521
  Receipt Date: 20210701
  Transmission Date: 20211014
  Serious: No
  Sender: FDA-Public Use
  Company Number: US-009507513-2105USA004430

PATIENT
  Sex: Female

DRUGS (2)
  1. LENVATINIB MESYLATE [Suspect]
     Active Substance: LENVATINIB MESYLATE
     Indication: ENDOMETRIAL CANCER
     Dosage: 20 MILLIGRAM DAILY
     Route: 048
     Dates: start: 20210413
  2. KEYTRUDA [Suspect]
     Active Substance: PEMBROLIZUMAB
     Indication: ENDOMETRIAL CANCER
     Dosage: UNK
     Dates: start: 202103

REACTIONS (15)
  - Rhinorrhoea [Unknown]
  - Aphonia [Unknown]
  - Decreased appetite [Unknown]
  - Diarrhoea [Unknown]
  - Abdominal discomfort [Recovering/Resolving]
  - Blood pressure increased [Unknown]
  - Vomiting [Recovered/Resolved]
  - White coat hypertension [Unknown]
  - Skin burning sensation [Recovering/Resolving]
  - Abdominal discomfort [Not Recovered/Not Resolved]
  - Dysphonia [Unknown]
  - Hypoaesthesia [Unknown]
  - Genital discomfort [Unknown]
  - Retching [Recovered/Resolved]
  - Product dose omission issue [Unknown]

NARRATIVE: CASE EVENT DATE: 2021
